FAERS Safety Report 4727847-6 (Version None)
Quarter: 2005Q3

REPORT INFORMATION
  Report Type: 
  Country: None (occurrence: None)
  Receive Date: 20050728
  Receipt Date: 20050408
  Transmission Date: 20060218
  Serious: Yes (Hospitalization, Disabling)
  Sender: FDA-Public Use
  Company Number: US-MERCK-0504USA01282

PATIENT
  Age: 63 Year
  Sex: Male
  Weight: 94 kg

DRUGS (9)
  1. CARDURA [Concomitant]
     Route: 065
     Dates: start: 20001001
  2. CELEBREX [Concomitant]
     Indication: RADICULOPATHY
     Route: 065
     Dates: start: 20010805
  3. DIOVAN [Concomitant]
     Route: 065
  4. VIAGRA [Concomitant]
     Route: 065
  5. PREDNISONE [Concomitant]
     Route: 065
  6. VIOXX [Suspect]
     Indication: RHEUMATOID ARTHRITIS
     Route: 048
     Dates: start: 19990101, end: 20040301
  7. VIOXX [Suspect]
     Route: 048
     Dates: start: 20040301, end: 20041001
  8. TOPROL-XL [Concomitant]
     Route: 065
  9. CARDURA [Concomitant]
     Route: 065
     Dates: start: 20000926, end: 20001001

REACTIONS (20)
  - ANGINA PECTORIS [None]
  - CERVICOBRACHIAL SYNDROME [None]
  - CHEST PAIN [None]
  - CORONARY ARTERY DISEASE [None]
  - DEAFNESS NEUROSENSORY [None]
  - DRUG INEFFECTIVE [None]
  - DYSPNOEA [None]
  - FIBROMYALGIA [None]
  - GASTRITIS [None]
  - HYPERCHOLESTEROLAEMIA [None]
  - HYPERTENSION [None]
  - JOINT SPRAIN [None]
  - MYALGIA [None]
  - MYOCARDIAL INFARCTION [None]
  - MYOSITIS [None]
  - OSTEOARTHRITIS [None]
  - PAIN [None]
  - RASH [None]
  - TINNITUS [None]
  - UPPER RESPIRATORY TRACT INFECTION [None]
